FAERS Safety Report 9863047 (Version 1)
Quarter: 2014Q1

REPORT INFORMATION
  Report Type: Spontaneous
  Country: US (occurrence: US)
  Receive Date: 20140203
  Receipt Date: 20140203
  Transmission Date: 20141002
  Serious: Yes (Other)
  Sender: FDA-Public Use
  Company Number: PHHY2014US012126

PATIENT
  Sex: Female

DRUGS (2)
  1. VOLTAREN [Suspect]
     Indication: OSTEOARTHRITIS
     Dosage: UNK UKN, UNK
     Dates: end: 201310
  2. NSAID^S [Concomitant]
     Dosage: UNK UKN, UNK

REACTIONS (1)
  - Renal disorder [Unknown]
